FAERS Safety Report 5274990-1 (Version None)
Quarter: 2007Q1

REPORT INFORMATION
  Report Type: 
  Country: None (occurrence: None)
  Receive Date: 20070325
  Receipt Date: 20070316
  Transmission Date: 20070707
  Serious: Yes (Hospitalization)
  Sender: FDA-Public Use
  Company Number: JP-ABBOTT-07P-087-0362292-00

PATIENT
  Sex: Male

DRUGS (10)
  1. NORVIR [Suspect]
     Indication: HIV INFECTION
     Route: 048
     Dates: start: 20050803
  2. LAMIVUDINE [Suspect]
     Indication: HIV INFECTION
     Route: 048
     Dates: start: 20050803
  3. STAVUDINE [Suspect]
     Indication: HIV INFECTION
     Route: 048
     Dates: start: 20050803
  4. FOSAMPRENAVIR [Suspect]
     Indication: HIV INFECTION
     Route: 048
     Dates: start: 20050803
  5. VALGANCICLOVIR HCL [Concomitant]
     Indication: CYTOMEGALOVIRUS CHORIORETINITIS
     Route: 048
     Dates: start: 20050401, end: 20050920
  6. BACTRIM [Concomitant]
     Indication: ANTIFUNGAL PROPHYLAXIS
     Route: 048
     Dates: start: 20050614
  7. SENNA EXTRACT [Concomitant]
     Indication: CONSTIPATION PROPHYLAXIS
     Route: 048
     Dates: start: 20050803
  8. LANSOPRAZOLE [Concomitant]
     Indication: GASTRITIS
     Route: 048
     Dates: start: 20050803
  9. MECAFUNGIN SODIUM [Concomitant]
     Indication: ORAL CANDIDIASIS
     Route: 042
     Dates: start: 20050803, end: 20050920
  10. FLUCONAZOLE [Concomitant]
     Indication: ANTIFUNGAL PROPHYLAXIS
     Route: 048
     Dates: start: 20050922

REACTIONS (5)
  - CYTOMEGALOVIRUS VIRAEMIA [None]
  - IMMUNE RECONSTITUTION SYNDROME [None]
  - IRON DEFICIENCY ANAEMIA [None]
  - MYCOBACTERIUM AVIUM COMPLEX INFECTION [None]
  - NUTRITIONAL CONDITION ABNORMAL [None]
